FAERS Safety Report 7992837-7 (Version None)
Quarter: 2011Q4

REPORT INFORMATION
  Report Type: 
  Country: None (occurrence: None)
  Receive Date: 20111219
  Receipt Date: 20110412
  Transmission Date: 20120403
  Serious: No
  Sender: FDA-Public Use
  Company Number: US-ASTRAZENECA-2011SE21018

PATIENT
  Age: 56 Year
  Sex: Female
  Weight: 58.1 kg

DRUGS (2)
  1. CRESTOR [Suspect]
     Indication: HYPERLIPIDAEMIA
     Route: 048
     Dates: start: 20110315
  2. NIACIN [Concomitant]

REACTIONS (2)
  - BLOOD PRESSURE SYSTOLIC INCREASED [None]
  - FEELING HOT [None]
